FAERS Safety Report 12699960 (Version 2)
Quarter: 2016Q4

REPORT INFORMATION
  Report Type: Report from Study
  Country: US (occurrence: US)
  Receive Date: 20160830
  Receipt Date: 20161028
  Transmission Date: 20170207
  Serious: Yes (Other)
  Sender: FDA-Public Use
  Company Number: US-BAYER-2016-055988

PATIENT
  Age: 63 Year
  Sex: Female

DRUGS (2)
  1. BETASERON [Suspect]
     Active Substance: INTERFERON BETA-1B
     Indication: PRODUCT USED FOR UNKNOWN INDICATION
     Dosage: 8 MIU, QOD
     Route: 058
     Dates: start: 19931101
  2. BETACONNECT [Suspect]
     Active Substance: DEVICE
     Indication: DEVICE THERAPY
     Dosage: UNK

REACTIONS (7)
  - Injection site pain [None]
  - Injection site pain [None]
  - Lack of injection site rotation [None]
  - Injection site inflammation [Not Recovered/Not Resolved]
  - Abscess [Recovered/Resolved]
  - Injection site induration [None]
  - Injection site discomfort [None]

NARRATIVE: CASE EVENT DATE: 20160318
